FAERS Safety Report 7120895-0 (Version None)
Quarter: 2010Q4

REPORT INFORMATION
  Report Type: 
  Country: None (occurrence: None)
  Receive Date: 20101124
  Receipt Date: 20101109
  Transmission Date: 20110411
  Serious: Yes (Life-Threatening, Other)
  Sender: FDA-Public Use
  Company Number: BR-US-EMD SERONO, INC.-7028676

PATIENT
  Sex: Female

DRUGS (5)
  1. REBIF [Suspect]
     Indication: RELAPSING-REMITTING MULTIPLE SCLEROSIS
     Dates: start: 20100201, end: 20100701
  2. MECLIN [Concomitant]
  3. BETASERC [Concomitant]
  4. SYNTHROID [Concomitant]
  5. FEMIANE [Concomitant]
     Indication: CONTRACEPTION

REACTIONS (6)
  - CENTRAL NERVOUS SYSTEM LESION [None]
  - DRUG INEFFECTIVE [None]
  - GENERAL SYMPTOM [None]
  - LOCAL REACTION [None]
  - LOSS OF CONSCIOUSNESS [None]
  - SYNCOPE [None]
